FAERS Safety Report 8473222-0 (Version None)
Quarter: 2012Q2

REPORT INFORMATION
  Report Type: 
  Country: None (occurrence: None)
  Receive Date: 20120627
  Receipt Date: 20120627
  Transmission Date: 20120825
  Serious: Yes (Hospitalization, Other)
  Sender: FDA-Public Use
  Company Number: US-PFIZER INC-2011084866

PATIENT
  Sex: Female

DRUGS (23)
  1. LIDODERM [Suspect]
     Dosage: UNK
  2. TRILEPTAL [Suspect]
     Dosage: UNK
  3. COUMADIN [Concomitant]
     Dosage: UNK
  4. TOPROL-XL [Concomitant]
     Dosage: UNK
  5. ULTRAM [Suspect]
     Dosage: UNK
  6. NEURONTIN [Suspect]
     Indication: NEUROPATHY PERIPHERAL
     Dosage: UNK
     Route: 048
     Dates: start: 20090101
  7. NEURONTIN [Suspect]
     Dosage: 600 MG, 3X/DAY
     Route: 048
     Dates: start: 20100610
  8. NEURONTIN [Suspect]
     Indication: NEURALGIA
     Dosage: UNK MG, 3X/DAY
     Dates: start: 20080101
  9. FLAGYL [Suspect]
     Indication: LIVER ABSCESS
     Dosage: UNK
     Dates: start: 20080601
  10. CYMBALTA [Suspect]
     Dosage: UNK
  11. METHADON HCL TAB [Suspect]
     Dosage: UNK
  12. NEURONTIN [Suspect]
     Dosage: 800 MG, 3X/DAY
  13. GABAPENTIN [Suspect]
     Dosage: 700 MG, 3X/DAY
  14. VICODIN [Suspect]
     Dosage: UNK
  15. XANAX [Concomitant]
     Dosage: UNK, AS NEEDED
  16. HYDROCHLOROTHIAZIDE [Concomitant]
     Dosage: UNK
  17. URSO 250 [Concomitant]
     Dosage: UNK
  18. KEPPRA [Suspect]
     Dosage: UNK
  19. NEURONTIN [Suspect]
     Dosage: 100 MG, 3X/DAY
  20. NORTRIPTYLINE HCL [Suspect]
     Dosage: UNK
  21. CARDURA [Concomitant]
     Dosage: UNK
  22. LYRICA [Suspect]
     Dosage: UNK
  23. ZESTRIL [Concomitant]
     Dosage: UNK

REACTIONS (14)
  - BLOOD PRESSURE INCREASED [None]
  - DRUG INEFFECTIVE [None]
  - MUSCULAR WEAKNESS [None]
  - NEUROPATHY PERIPHERAL [None]
  - PERIPHERAL SENSORY NEUROPATHY [None]
  - DECREASED VIBRATORY SENSE [None]
  - REFLEXES ABNORMAL [None]
  - NEURALGIA [None]
  - SWELLING [None]
  - FOOT DEFORMITY [None]
  - PARAESTHESIA [None]
  - GASTROINTESTINAL DISORDER [None]
  - CELLULITIS [None]
  - CONSTIPATION [None]
